FAERS Safety Report 7831499-6 (Version None)
Quarter: 2011Q4

REPORT INFORMATION
  Report Type: 
  Country: None (occurrence: None)
  Receive Date: 20111021
  Receipt Date: 20111021
  Transmission Date: 20120403
  Serious: Yes (Other)
  Sender: FDA-Public Use
  Company Number: None

PATIENT
  Age: 61 Year
  Sex: Female
  Weight: 65.317 kg

DRUGS (1)
  1. FOSAMAX [Suspect]
     Indication: OSTEOPOROSIS
     Dosage: 75 MG
     Dates: start: 19990917, end: 20071207

REACTIONS (5)
  - GAIT DISTURBANCE [None]
  - PAIN IN EXTREMITY [None]
  - FEMUR FRACTURE [None]
  - STRESS FRACTURE [None]
  - FALL [None]
